FAERS Safety Report 19506350 (Version 1)
Quarter: 2021Q3

REPORT INFORMATION
  Report Type: Spontaneous
  Country: US (occurrence: US)
  Receive Date: 20210708
  Receipt Date: 20210708
  Transmission Date: 20211014
  Serious: No
  Sender: FDA-Public Use
  Company Number: None

PATIENT
  Age: 72 Year
  Sex: Male

DRUGS (1)
  1. NORTRIPTYLINE (NORTRIPTYLINE HCL 10MG CAP) [Suspect]
     Active Substance: NORTRIPTYLINE HYDROCHLORIDE
     Dates: start: 20210429

REACTIONS (1)
  - Hypotension [None]
